FAERS Safety Report 5296615-1 (Version None)
Quarter: 2007Q1

REPORT INFORMATION
  Report Type: 
  Country: None (occurrence: None)
  Receive Date: 20070201
  Receipt Date: 20061108
  Transmission Date: 20070707
  Serious: No
  Sender: FDA-Public Use
  Company Number: 2006PV024825

PATIENT
  Age: 63 Year
  Sex: Male
  Weight: 92.9874 kg

DRUGS (7)
  1. BYETTA [Suspect]
     Indication: DIABETES MELLITUS NON-INSULIN-DEPENDENT
     Dosage: 5 MCG; BID; SC
     Route: 058
     Dates: start: 20061106
  2. IMDUR [Concomitant]
  3. METFORMIN HCL [Concomitant]
  4. VYTORIN [Concomitant]
  5. WARFARIN SODIUM [Concomitant]
  6. ATENOLOL [Concomitant]
  7. FOLIC ACID [Concomitant]

REACTIONS (4)
  - BACK PAIN [None]
  - FEELING ABNORMAL [None]
  - GASTROINTESTINAL PAIN [None]
  - VOMITING [None]
